FAERS Safety Report 10516665 (Version 1)
Quarter: 2014Q4

REPORT INFORMATION
  Report Type: Spontaneous
  Country: US (occurrence: None)
  Receive Date: 20141003
  Receipt Date: 20141003
  Transmission Date: 20150528
  Serious: Yes (Other)
  Sender: FDA-Public Use
  Company Number: 1347558

PATIENT
  Age: 55 Year
  Sex: Female

DRUGS (3)
  1. RIBAVIRIN (RIBAVIRIN) [Suspect]
     Active Substance: RIBAVIRIN
     Indication: CHRONIC HEPATITIS C
     Dosage: 1 IN 1 D
     Dates: start: 20140207
  2. PEGASYS [Suspect]
     Active Substance: PEGINTERFERON ALFA-2A
     Indication: CHRONIC HEPATITIS C
     Dosage: 1 IN 1 WK
     Dates: start: 20140207
  3. SOVALDI [Suspect]
     Active Substance: SOFOSBUVIR
     Indication: CHRONIC HEPATITIS C
     Dosage: 1 IN 1 D
     Dates: start: 20140207

REACTIONS (12)
  - Suicidal ideation [None]
  - Headache [None]
  - Irritability [None]
  - Hyperhidrosis [None]
  - Hyperventilation [None]
  - Mood swings [None]
  - Dehydration [None]
  - Fatigue [None]
  - Crying [None]
  - Cold sweat [None]
  - Presyncope [None]
  - Tremor [None]
